FAERS Safety Report 7071562-3 (Version None)
Quarter: 2010Q4

REPORT INFORMATION
  Report Type: 
  Country: None (occurrence: None)
  Receive Date: 20101029
  Receipt Date: 20091020
  Transmission Date: 20110411
  Serious: Yes (Other)
  Sender: FDA-Public Use
  Company Number: A0808676A

PATIENT
  Age: 61 Year
  Sex: Female

DRUGS (9)
  1. ADVAIR DISKUS 100/50 [Suspect]
     Indication: CHRONIC OBSTRUCTIVE PULMONARY DISEASE
     Dosage: 1PUFF TWICE PER DAY
     Route: 055
     Dates: start: 20040101
  2. DUONEB [Concomitant]
  3. COMBIVENT [Concomitant]
  4. NEXIUM [Concomitant]
  5. ISOSORBIDE DINITRATE [Concomitant]
  6. METOPROLOL [Concomitant]
  7. DETROL [Concomitant]
  8. TRAMADOL [Concomitant]
  9. COLACE [Concomitant]

REACTIONS (1)
  - CATARACT [None]
